FAERS Safety Report 5430508-1 (Version None)
Quarter: 2007Q3

REPORT INFORMATION
  Report Type: 
  Country: None (occurrence: None)
  Receive Date: 20070828
  Receipt Date: 20070813
  Transmission Date: 20080115
  Serious: Yes (Other)
  Sender: FDA-Public Use
  Company Number: 2007RR-09331

PATIENT
  Age: 4 Year
  Sex: Female

DRUGS (4)
  1. CLARITHROMYCIN [Suspect]
     Indication: ACUTE TONSILLITIS
     Dosage: G
  2. AMOXICILLIN AND CLAVULANATE POTASSIUM [Suspect]
  3. ACETAMINOPHEN [Suspect]
  4. IBUPROFEN [Suspect]

REACTIONS (1)
  - AGRANULOCYTOSIS [None]
